FAERS Safety Report 21260233 (Version 1)
Quarter: 2022Q3

REPORT INFORMATION
  Report Type: Spontaneous
  Country: US (occurrence: None)
  Receive Date: 20220823
  Receipt Date: 20220823
  Transmission Date: 20221026
  Serious: Yes (Other)
  Sender: FDA-Public Use
  Company Number: None

PATIENT
  Age: 11 Year
  Sex: Female
  Weight: 54.9 kg

DRUGS (6)
  1. DENATONIUM BENZOATE [Suspect]
     Active Substance: DENATONIUM BENZOATE
     Indication: Onychophagia
     Dosage: FREQUENCY : AS NEEDED;?
     Route: 061
     Dates: start: 20220822, end: 20220822
  2. VYVANSE [Concomitant]
     Active Substance: LISDEXAMFETAMINE DIMESYLATE
  3. Multivitamin [Concomitant]
  4. ZYRTEC [Concomitant]
     Active Substance: CETIRIZINE HYDROCHLORIDE
  5. FLONASE [Concomitant]
     Active Substance: FLUTICASONE PROPIONATE
  6. PROBIOTICS NOS [Concomitant]
     Active Substance: PROBIOTICS NOS

REACTIONS (7)
  - Dysgeusia [None]
  - Accidental exposure to product [None]
  - Headache [None]
  - Feeling abnormal [None]
  - Feeling abnormal [None]
  - Vomiting [None]
  - Nausea [None]

NARRATIVE: CASE EVENT DATE: 20220822
